FAERS Safety Report 6628355-8 (Version None)
Quarter: 2010Q1

REPORT INFORMATION
  Report Type: 
  Country: None (occurrence: None)
  Receive Date: 20100311
  Receipt Date: 20100302
  Transmission Date: 20100710
  Serious: Yes (Hospitalization)
  Sender: FDA-Public Use
  Company Number: GB-ROCHE-688586

PATIENT
  Age: 37 Year
  Sex: Female

DRUGS (5)
  1. TAMIFLU [Suspect]
     Indication: DRUG USE FOR UNKNOWN INDICATION
     Route: 065
  2. BUSCOPAN [Concomitant]
  3. TRAMADOL HYDROCHLORIDE [Concomitant]
  4. OMEPRAZOLE [Concomitant]
  5. ACETAMINOPHEN AND CODEINE PHOSPHATE [Concomitant]

REACTIONS (3)
  - JAUNDICE [None]
  - RASH [None]
  - RASH GENERALISED [None]
